FAERS Safety Report 7350311-5 (Version None)
Quarter: 2011Q1

REPORT INFORMATION
  Report Type: 
  Country: None (occurrence: None)
  Receive Date: 20110314
  Receipt Date: 20110307
  Transmission Date: 20110831
  Serious: Yes (Other)
  Sender: FDA-Public Use
  Company Number: US-BAXTER-2011BH005660

PATIENT
  Age: 50 Year
  Sex: Male

DRUGS (9)
  1. FLUCONAZOLE [Concomitant]
     Indication: PROPHYLAXIS
     Route: 065
  2. CYCLOPHOSPHAMIDE [Suspect]
     Indication: T-CELL TYPE ACUTE LEUKAEMIA
     Route: 065
  3. DEXAMETHASONE [Suspect]
     Indication: VISUAL IMPAIRMENT
     Route: 047
  4. ACYCLOVIR [Concomitant]
     Indication: PROPHYLAXIS
     Route: 065
  5. DEXAMETHASONE [Suspect]
     Indication: T-CELL TYPE ACUTE LEUKAEMIA
     Route: 065
  6. CIPROFLOXACIN [Concomitant]
     Indication: PROPHYLAXIS
     Route: 065
  7. VINCRISTINE SULFATE [Suspect]
     Indication: T-CELL TYPE ACUTE LEUKAEMIA
     Route: 065
  8. DOXORUBICIN HCL [Suspect]
     Indication: T-CELL TYPE ACUTE LEUKAEMIA
     Route: 065
  9. RITUXIMAB [Suspect]
     Indication: T-CELL TYPE ACUTE LEUKAEMIA
     Route: 065

REACTIONS (1)
  - CYTOMEGALOVIRUS CHORIORETINITIS [None]
